APPROVED DRUG PRODUCT: LIDOCAINE HYDROCHLORIDE
Active Ingredient: LIDOCAINE HYDROCHLORIDE
Strength: 1%
Dosage Form/Route: INJECTABLE;INJECTION
Application: A207182 | Product #001 | TE Code: AP
Applicant: EUGIA PHARMA SPECIALITIES LTD
Approved: Oct 30, 2017 | RLD: No | RS: No | Type: RX